FAERS Safety Report 14560737 (Version 1)
Quarter: 2018Q1

REPORT INFORMATION
  Report Type: Spontaneous
  Country: IT (occurrence: IT)
  Receive Date: 20180222
  Receipt Date: 20180222
  Transmission Date: 20180509
  Serious: Yes (Other)
  Sender: FDA-Public Use
  Company Number: IT-ACCORD-063783

PATIENT
  Age: 73 Year
  Sex: Male
  Weight: 172 kg

DRUGS (6)
  1. OXALIPLATIN. [Suspect]
     Active Substance: OXALIPLATIN
     Indication: COLON CANCER
     Route: 042
     Dates: start: 20170726, end: 20171121
  2. FOLINIC ACID [Suspect]
     Active Substance: LEUCOVORIN
     Indication: COLON CANCER
     Route: 042
     Dates: start: 20170726, end: 20171121
  3. PARIET [Concomitant]
     Active Substance: RABEPRAZOLE SODIUM
     Route: 048
  4. FLUOROURACIL. [Suspect]
     Active Substance: FLUOROURACIL
     Indication: COLON CANCER
     Route: 042
     Dates: start: 20170726, end: 20171121
  5. CARDIOASPIRIN [Concomitant]
     Active Substance: ASPIRIN
     Route: 048
  6. BISOPROLOL [Concomitant]
     Active Substance: BISOPROLOL
     Indication: HYPERTENSION
     Route: 048

REACTIONS (4)
  - Diarrhoea [Recovering/Resolving]
  - Nausea [Recovering/Resolving]
  - Thrombocytopenia [Recovering/Resolving]
  - Abdominal pain [Recovering/Resolving]

NARRATIVE: CASE EVENT DATE: 20171121
